FAERS Safety Report 4653784-1 (Version None)
Quarter: 2005Q2

REPORT INFORMATION
  Report Type: 
  Country: None (occurrence: None)
  Receive Date: 20050404
  Receipt Date: 20041112
  Transmission Date: 20051028
  Serious: No
  Sender: FDA-Public Use
  Company Number: US_0411108258

PATIENT
  Age: 75 Year
  Sex: Female

DRUGS (12)
  1. CYMBALTA (DULOEXTINE HYDROCHLORIDE) [Suspect]
     Indication: DIABETIC NEUROPATHY
     Dosage: 60 MG DAY
     Dates: start: 20041001
  2. XANAX (ALPRAZOLAM DUM) [Concomitant]
  3. PLETAL [Concomitant]
  4. THYROID TAB [Concomitant]
  5. MAXZIDE [Concomitant]
  6. AMBIEN [Concomitant]
  7. FOSAMAX [Concomitant]
  8. VOLTAREN [Concomitant]
  9. ATENOLOL [Concomitant]
  10. ULTRAM [Concomitant]
  11. MULTI-VITAMIN [Concomitant]
  12. EFFEXOR [Concomitant]

REACTIONS (1)
  - BLOOD GLUCOSE INCREASED [None]
